FAERS Safety Report 4450361-2 (Version None)
Quarter: 2004Q3

REPORT INFORMATION
  Report Type: 
  Country: None (occurrence: None)
  Receive Date: 20040914
  Receipt Date: 20040908
  Transmission Date: 20050211
  Serious: Yes (Hospitalization)
  Sender: FDA-Public Use
  Company Number: MK200409-0075-1

PATIENT
  Age: 43 Year
  Sex: Female

DRUGS (3)
  1. ANAFRANIL CAP [Suspect]
     Dosage: 150MG DAILY
  2. HALOPERIDOL [Concomitant]
  3. CHLORPROMAZINE [Concomitant]

REACTIONS (11)
  - ALCOHOL USE [None]
  - CEREBRAL ATROPHY [None]
  - CONVULSION [None]
  - DELIRIUM [None]
  - DEPERSONALISATION [None]
  - DEREALISATION [None]
  - DISSOCIATION [None]
  - HYPONATRAEMIA [None]
  - MAJOR DEPRESSION [None]
  - SCHIZOPHRENIFORM DISORDER [None]
  - SUICIDE ATTEMPT [None]
